FAERS Safety Report 15676781 (Version 4)
Quarter: 2019Q1

REPORT INFORMATION
  Report Type: Report from Study
  Country: CA (occurrence: CA)
  Receive Date: 20181130
  Receipt Date: 20190327
  Transmission Date: 20190417
  Serious: Yes (Hospitalization)
  Sender: FDA-Public Use
  Company Number: CA-ACTELION-A-US2017-162839

PATIENT
  Age: 48 Year
  Sex: Female
  Weight: 110 kg

DRUGS (11)
  1. SILDENAFIL. [Suspect]
     Active Substance: SILDENAFIL
     Dosage: UNK
     Route: 065
  2. LASIX [Concomitant]
     Active Substance: FUROSEMIDE
  3. CARIPUL [Suspect]
     Active Substance: EPOPROSTENOL
     Indication: PULMONARY ARTERIAL HYPERTENSION
     Dosage: 45,000 NG
     Route: 042
     Dates: start: 20170921
  4. TRACLEER [Concomitant]
     Active Substance: BOSENTAN
     Indication: PULMONARY ARTERIAL HYPERTENSION
     Route: 048
  5. CARIPUL [Suspect]
     Active Substance: EPOPROSTENOL
     Dosage: 28000 NG
     Route: 042
     Dates: start: 20171010
  6. SILDENAFIL. [Suspect]
     Active Substance: SILDENAFIL
     Indication: PRODUCT USED FOR UNKNOWN INDICATION
     Dosage: UNK
     Route: 065
     Dates: start: 201903, end: 20190311
  7. RABEPRAZOLE [Concomitant]
     Active Substance: RABEPRAZOLE
  8. WARFARIN [Concomitant]
     Active Substance: WARFARIN
  9. SERTRALINE [Concomitant]
     Active Substance: SERTRALINE HYDROCHLORIDE
  10. OXYGEN. [Concomitant]
     Active Substance: OXYGEN
     Dosage: 3 L/MIN, PRN
  11. CITRAL [Concomitant]
     Active Substance: CITRAL

REACTIONS (31)
  - Vomiting [Not Recovered/Not Resolved]
  - Decreased appetite [Not Recovered/Not Resolved]
  - Nausea [Not Recovered/Not Resolved]
  - Catheter site hypersensitivity [Unknown]
  - Skin warm [Unknown]
  - Dyspnoea [Not Recovered/Not Resolved]
  - Septic shock [Not Recovered/Not Resolved]
  - Blood pressure decreased [Not Recovered/Not Resolved]
  - Erythema [Unknown]
  - Diarrhoea [Not Recovered/Not Resolved]
  - Adverse reaction [Not Recovered/Not Resolved]
  - Device related infection [Not Recovered/Not Resolved]
  - Pain in extremity [Not Recovered/Not Resolved]
  - Nasopharyngitis [Not Recovered/Not Resolved]
  - Catheter site pain [Unknown]
  - Skin infection [Unknown]
  - Endodontic procedure [Unknown]
  - Dermatitis contact [Unknown]
  - Stress [Not Recovered/Not Resolved]
  - Chapped lips [Not Recovered/Not Resolved]
  - Pain [Not Recovered/Not Resolved]
  - Malaise [Unknown]
  - Tremor [Not Recovered/Not Resolved]
  - Weight decreased [Not Recovered/Not Resolved]
  - Catheter site inflammation [Unknown]
  - Abdominal discomfort [Not Recovered/Not Resolved]
  - Fatigue [Not Recovered/Not Resolved]
  - Chills [Not Recovered/Not Resolved]
  - Asthenia [Not Recovered/Not Resolved]
  - Limb discomfort [Not Recovered/Not Resolved]
  - Catheter site discharge [Unknown]

NARRATIVE: CASE EVENT DATE: 20180618
